FAERS Safety Report 5540638-1 (Version None)
Quarter: 2007Q4

REPORT INFORMATION
  Report Type: 
  Country: None (occurrence: None)
  Receive Date: 20071129
  Receipt Date: 20071004
  Transmission Date: 20080405
  Serious: Yes (Hospitalization)
  Sender: FDA-Public Use
  Company Number: US200707005239

PATIENT
  Age: 25 Year
  Sex: Male
  Weight: 140.6 kg

DRUGS (6)
  1. OLANZAPINE [Suspect]
     Dosage: 5 MG,; 17.5 MG,
     Dates: start: 19970127
  2. ALTACE [Concomitant]
  3. GEODON [Concomitant]
  4. PROZAC [Concomitant]
  5. PAXIL [Concomitant]
  6. LEXAPRO [Concomitant]

REACTIONS (6)
  - DIABETES MELLITUS [None]
  - DIABETIC KETOACIDOSIS [None]
  - HYPERGLYCAEMIA [None]
  - OBESITY [None]
  - SLEEP APNOEA SYNDROME [None]
  - WEIGHT INCREASED [None]
